FAERS Safety Report 6313362-5 (Version None)
Quarter: 2009Q3

REPORT INFORMATION
  Report Type: 
  Country: None (occurrence: None)
  Receive Date: 20090818
  Receipt Date: 20090812
  Transmission Date: 20100115
  Serious: Yes (Hospitalization, Other)
  Sender: FDA-Public Use
  Company Number: GB-BAYER-200928021GPV

PATIENT
  Age: 54 Year
  Sex: Female

DRUGS (5)
  1. ALEMTUZUMAB [Suspect]
     Indication: STEM CELL TRANSPLANT
     Route: 065
  2. FLUDARABINE PHOSPHATE [Suspect]
     Indication: ACUTE MYELOID LEUKAEMIA
     Route: 065
  3. CYCLOSPORINE [Concomitant]
     Indication: ACUTE MYELOID LEUKAEMIA
     Dosage: GRADUAL WITHDRAWAL OF CYCLOSPORINE (IMMUNOSUPPRESSION)
     Route: 065
  4. IDARUBICIN HCL [Concomitant]
     Indication: ACUTE MYELOID LEUKAEMIA
     Route: 065
  5. CYTARABINE [Concomitant]
     Indication: ACUTE MYELOID LEUKAEMIA
     Route: 065

REACTIONS (9)
  - BONE MARROW FAILURE [None]
  - CARDIAC FAILURE CONGESTIVE [None]
  - CONGESTIVE CARDIOMYOPATHY [None]
  - EPSTEIN-BARR VIRUS INFECTION [None]
  - GASTROENTERITIS ADENOVIRUS [None]
  - OROPHARYNGEAL PAIN [None]
  - PARVOVIRUS INFECTION [None]
  - RHINITIS [None]
  - VIRAL MYOCARDITIS [None]
